FAERS Safety Report 9836207 (Version 1)
Quarter: 2014Q1

REPORT INFORMATION
  Report Type: Spontaneous
  Country: GB (occurrence: GB)
  Receive Date: 20140123
  Receipt Date: 20140123
  Transmission Date: 20141002
  Serious: Yes (Disabling, Other)
  Sender: FDA-Public Use
  Company Number: PHHY2014GB003811

PATIENT
  Age: 39 Year
  Sex: Female

DRUGS (4)
  1. AMOXICILLIN [Suspect]
     Indication: COUGH
     Dosage: 10 ML, TID
     Route: 048
     Dates: start: 20120726, end: 20120726
  2. AMOXICILLIN [Suspect]
     Indication: LOWER RESPIRATORY TRACT INFECTION
  3. NUROFEN [Suspect]
     Indication: BACK PAIN
     Dosage: 200 MG, UNK
     Route: 048
  4. VENTOLINE EVOHALER [Concomitant]
     Dosage: 2 DF, UNK
     Route: 055

REACTIONS (10)
  - Blindness [Not Recovered/Not Resolved]
  - Deafness [Not Recovered/Not Resolved]
  - Malaise [Not Recovered/Not Resolved]
  - Headache [Not Recovered/Not Resolved]
  - Feeling abnormal [Recovered/Resolved]
  - Tremor [Not Recovered/Not Resolved]
  - Feeling hot [Not Recovered/Not Resolved]
  - Palpitations [Not Recovered/Not Resolved]
  - Dizziness [Not Recovered/Not Resolved]
  - Vomiting [Not Recovered/Not Resolved]
